FAERS Safety Report 4868721-4 (Version None)
Quarter: 2005Q4

REPORT INFORMATION
  Report Type: 
  Country: None (occurrence: None)
  Receive Date: 20051223
  Receipt Date: 20051215
  Transmission Date: 20060501
  Serious: Yes (Other)
  Sender: FDA-Public Use
  Company Number: 2005169331

PATIENT
  Age: 59 Year
  Sex: Female
  Weight: 75 kg

DRUGS (6)
  1. LYRICA [Suspect]
     Indication: NEURALGIA
     Dosage: 150 MG (50 MG, 3 IN 1 D) ORAL
     Route: 048
     Dates: start: 20051118, end: 20051201
  2. AMOXICILLIN [Concomitant]
  3. METHYSERGIDE [Concomitant]
  4. TIOTROPIUM BROMIDE [Concomitant]
  5. SALBUTAMOL [Concomitant]
  6. OMEPRAZOLE [Concomitant]

REACTIONS (5)
  - DYSARTHRIA [None]
  - HEADACHE [None]
  - NAUSEA [None]
  - SOMNOLENCE [None]
  - VOMITING [None]
